FAERS Safety Report 7598959-7 (Version None)
Quarter: 2011Q3

REPORT INFORMATION
  Report Type: 
  Country: None (occurrence: None)
  Receive Date: 20110711
  Receipt Date: 20110630
  Transmission Date: 20111222
  Serious: No
  Sender: FDA-Public Use
  Company Number: US-BIOGENIDEC-2011BI024479

PATIENT
  Age: 46 Year
  Sex: Female

DRUGS (4)
  1. AVONEX [Concomitant]
     Indication: MULTIPLE SCLEROSIS
     Route: 030
     Dates: start: 19981001
  2. TYSABRI [Suspect]
     Indication: MULTIPLE SCLEROSIS
     Route: 042
     Dates: start: 20110610
  3. TYSABRI [Suspect]
     Route: 042
     Dates: start: 20091009, end: 20101012
  4. TYSABRI [Suspect]
     Route: 042
     Dates: start: 20070209, end: 20080711

REACTIONS (3)
  - RASH [None]
  - GAIT DISTURBANCE [None]
  - FALL [None]
